FAERS Safety Report 12136783 (Version 1)
Quarter: 2016Q1

REPORT INFORMATION
  Report Type: Spontaneous
  Country: US (occurrence: None)
  Receive Date: 20160301
  Receipt Date: 20160301
  Transmission Date: 20160526
  Serious: Yes (Hospitalization)
  Sender: FDA-Public Use
  Company Number: None

PATIENT
  Age: 2 Year
  Sex: Male
  Weight: 13.8 kg

DRUGS (1)
  1. CYTARABINE. [Suspect]
     Active Substance: CYTARABINE
     Dates: end: 20151215

REACTIONS (7)
  - Unresponsive to stimuli [None]
  - Device related infection [None]
  - Pupillary reflex impaired [None]
  - Intestinal perforation [None]
  - Eye disorder [None]
  - Pupils unequal [None]
  - Staphylococcal infection [None]

NARRATIVE: CASE EVENT DATE: 20160107
